FAERS Safety Report 5593245-9 (Version None)
Quarter: 2008Q1

REPORT INFORMATION
  Report Type: 
  Country: None (occurrence: None)
  Receive Date: 20080115
  Receipt Date: 20080115
  Transmission Date: 20080703
  Serious: Yes (Hospitalization)
  Sender: FDA-Public Use
  Company Number: None

PATIENT
  Sex: Female
  Weight: 68 kg

DRUGS (2)
  1. CARBOPLATIN [Suspect]
     Dosage: 546 MG FIRST CYCLE
     Dates: start: 20071227
  2. TAXOL [Suspect]
     Dosage: 303 MG FIRST CYCLE
     Dates: start: 20071227

REACTIONS (4)
  - ASCITES [None]
  - CLOSTRIDIUM DIFFICILE COLITIS [None]
  - PLEURAL EFFUSION [None]
  - PSEUDOMEMBRANOUS COLITIS [None]
